FAERS Safety Report 10458635 (Version 1)
Quarter: 2014Q3

REPORT INFORMATION
  Report Type: Spontaneous
  Country: US (occurrence: None)
  Receive Date: 20140916
  Receipt Date: 20140916
  Transmission Date: 20150326
  Serious: Yes (Hospitalization)
  Sender: FDA-Public Use
  Company Number: None

PATIENT
  Age: 5 Year
  Sex: Female
  Weight: 17.2 kg

DRUGS (5)
  1. METHOTREXATE [Suspect]
     Active Substance: METHOTREXATE
     Dosage: CHEMO. HELD
     Dates: end: 20140827
  2. MERCAPTOPURINE. [Suspect]
     Active Substance: MERCAPTOPURINE
     Dosage: CHEMO. HELD?
     Dates: end: 20140902
  3. VINCRISTINE SULFATE. [Suspect]
     Active Substance: VINCRISTINE SULFATE
     Dates: end: 20140716
  4. PREDNISONE. [Suspect]
     Active Substance: PREDNISONE
     Dates: end: 20140720
  5. ACYCLOVIR. [Concomitant]
     Active Substance: ACYCLOVIR

REACTIONS (10)
  - Hypophagia [None]
  - Urine odour abnormal [None]
  - Pancytopenia [None]
  - Rash [None]
  - Mucosal inflammation [None]
  - Mouth ulceration [None]
  - Escherichia test positive [None]
  - Culture urine positive [None]
  - Oral discomfort [None]
  - Rash vesicular [None]

NARRATIVE: CASE EVENT DATE: 20140827
